FAERS Safety Report 4619266-8 (Version None)
Quarter: 2005Q1

REPORT INFORMATION
  Report Type: 
  Country: None (occurrence: None)
  Receive Date: 20050325
  Receipt Date: 20050303
  Transmission Date: 20050727
  Serious: Yes (Other)
  Sender: FDA-Public Use
  Company Number: JP-MERCK-0503USA01092

PATIENT
  Age: 56 Year
  Sex: Male

DRUGS (2)
  1. COZAAR [Suspect]
     Route: 048
     Dates: start: 20040930
  2. LIPITOR [Suspect]
     Route: 048
     Dates: start: 20040620, end: 20050224

REACTIONS (6)
  - BLOOD CREATINE PHOSPHOKINASE INCREASED [None]
  - BLOOD LACTATE DEHYDROGENASE INCREASED [None]
  - MYOGLOBINURIA [None]
  - MYOPATHY [None]
  - RHABDOMYOLYSIS [None]
  - SPEECH DISORDER [None]
